FAERS Safety Report 4893138-6 (Version None)
Quarter: 2005Q4

REPORT INFORMATION
  Report Type: 
  Country: None (occurrence: None)
  Receive Date: 20051223
  Receipt Date: 20051020
  Transmission Date: 20060501
  Serious: No
  Sender: FDA-Public Use
  Company Number: 218831

PATIENT
  Age: 65 Year
  Sex: Female

DRUGS (3)
  1. AVASTIN [Suspect]
     Indication: NON-SMALL CELL LUNG CANCER
     Dates: start: 20050929
  2. CARBOPLATIN [Concomitant]
  3. TAXOL [Concomitant]

REACTIONS (1)
  - DEEP VEIN THROMBOSIS [None]
